FAERS Safety Report 9661048 (Version 2)
Quarter: 2014Q2

REPORT INFORMATION
  Report Type: Report from Study
  Country: JP (occurrence: JP)
  Receive Date: 20131031
  Receipt Date: 20140415
  Transmission Date: 20141212
  Serious: Yes (Hospitalization)
  Sender: FDA-Public Use
  Company Number: JP-GLAXOSMITHKLINE-B0936793A

PATIENT
  Age: 29 Year
  Sex: Female
  Weight: 54 kg

DRUGS (5)
  1. VOTRIENT 200MG [Suspect]
     Indication: ALVEOLAR SOFT PART SARCOMA
     Dosage: 800MG PER DAY
     Route: 048
     Dates: start: 20121103, end: 20121130
  2. VOTRIENT 200MG [Suspect]
     Indication: ALVEOLAR SOFT PART SARCOMA
     Dosage: 600MG PER DAY
     Route: 048
     Dates: start: 20121217, end: 20130204
  3. VOTRIENT 200MG [Suspect]
     Indication: ALVEOLAR SOFT PART SARCOMA
     Dosage: 400MG PER DAY
     Route: 048
     Dates: start: 20130213, end: 20130512
  4. ZOMETA [Concomitant]
     Route: 042
     Dates: start: 20120210, end: 20120406
  5. RANMARK [Concomitant]
     Route: 058

REACTIONS (10)
  - Thrombosis [Recovering/Resolving]
  - Proteinuria [Recovered/Resolved]
  - Blood creatinine increased [Recovered/Resolved]
  - Hypertension [Recovered/Resolved]
  - Hypoalbuminaemia [Recovering/Resolving]
  - Platelet count decreased [Recovered/Resolved]
  - Purpura [Recovered/Resolved]
  - Accommodation disorder [Recovered/Resolved]
  - Vertigo [Recovered/Resolved]
  - Hypothyroidism [Not Recovered/Not Resolved]
